FAERS Safety Report 24701637 (Version 2)
Quarter: 2024Q4

REPORT INFORMATION
  Report Type: Spontaneous
  Country: JP (occurrence: JP)
  Receive Date: 20241205
  Receipt Date: 20241219
  Transmission Date: 20250115
  Serious: Yes (Other)
  Sender: ELI LILLY AND COMPANY
  Company Number: JP-ELI_LILLY_AND_COMPANY-JP202411017597

PATIENT
  Age: 31 Year
  Sex: Female

DRUGS (5)
  1. EBGLYSS [Suspect]
     Active Substance: LEBRIKIZUMAB-LBKZ
     Indication: Dermatitis atopic
     Dosage: 500 MG
     Route: 058
     Dates: start: 20241118, end: 20241118
  2. HYTHIOL [Concomitant]
     Indication: Acne pustular
     Dosage: 80 MG, BID
     Route: 048
     Dates: start: 20131007
  3. HYTHIOL [Concomitant]
     Indication: Dermatitis atopic
  4. ALLELOCK [Concomitant]
     Active Substance: OLOPATADINE HYDROCHLORIDE
     Indication: Dermatitis atopic
     Dosage: 5 MG, BID
     Route: 048
     Dates: start: 20121031
  5. DESLORATADINE [Concomitant]
     Active Substance: DESLORATADINE
     Indication: Dermatitis atopic
     Dosage: 5 MG, DAILY
     Route: 048
     Dates: start: 20221116

REACTIONS (1)
  - Dermatitis exfoliative generalised [Recovered/Resolved]

NARRATIVE: CASE EVENT DATE: 20241126
